FAERS Safety Report 6938559-2 (Version None)
Quarter: 2010Q3

REPORT INFORMATION
  Report Type: 
  Country: None (occurrence: None)
  Receive Date: 20100824
  Receipt Date: 20100816
  Transmission Date: 20110219
  Serious: Yes (Hospitalization)
  Sender: FDA-Public Use
  Company Number: US-ELI_LILLY_AND_COMPANY-US201006004315

PATIENT
  Sex: Male
  Weight: 62.132 kg

DRUGS (13)
  1. PEMETREXED [Suspect]
     Indication: NON-SMALL CELL LUNG CANCER
     Dosage: 500 MG/M2, OTHER
     Route: 042
     Dates: start: 20100402, end: 20100604
  2. CARBOPLATIN [Suspect]
     Indication: NON-SMALL CELL LUNG CANCER
     Dosage: 6 D/F, UNK
     Dates: start: 20100402, end: 20100604
  3. BEVACIZUMAB [Suspect]
     Indication: NON-SMALL CELL LUNG CANCER
     Dosage: 15 MG/KG, OTHER
     Route: 042
     Dates: start: 20100402, end: 20100604
  4. XANAX [Concomitant]
     Indication: ANXIETY
     Dates: end: 20100613
  5. AVANDIA [Concomitant]
     Indication: DIABETES MELLITUS
     Dosage: UNK, UNK
     Dates: start: 19990101, end: 20100610
  6. CITALOPRAM HYDROBROMIDE [Concomitant]
     Indication: DEPRESSION
     Dosage: UNK, UNK
     Dates: start: 20100201, end: 20100610
  7. LIPITOR [Concomitant]
     Indication: BLOOD CHOLESTEROL INCREASED
     Dosage: UNK, UNK
     Dates: start: 20010101, end: 20100610
  8. NEXIUM [Concomitant]
     Indication: GASTROOESOPHAGEAL REFLUX DISEASE
     Dosage: UNK, UNK
     Dates: start: 19950101, end: 20100610
  9. TRAMADOL HCL [Concomitant]
     Indication: PAIN
     Dosage: UNK, UNK
     Dates: start: 20100402, end: 20100610
  10. VITAMIN B-12 [Concomitant]
     Dosage: UNK, UNK
     Dates: start: 20100325, end: 20100613
  11. FOLIC ACID [Concomitant]
     Dosage: UNK, UNK
     Dates: start: 20100325, end: 20100610
  12. ALBUTEROL [Concomitant]
     Indication: DYSPNOEA
     Dosage: UNK, UNK
     Dates: start: 20010101, end: 20100610
  13. ZOFRAN [Concomitant]
     Indication: NAUSEA
     Dosage: UNK, UNK
     Dates: start: 20100318, end: 20100610

REACTIONS (2)
  - ABDOMINAL PAIN [None]
  - MENTAL STATUS CHANGES [None]
